FAERS Safety Report 17537691 (Version 4)
Quarter: 2020Q2

REPORT INFORMATION
  Report Type: Spontaneous
  Country: US (occurrence: US)
  Receive Date: 20200313
  Receipt Date: 20200624
  Transmission Date: 20200713
  Serious: Yes (Other)
  Sender: FDA-Public Use
  Company Number: NVSC2020US069901

PATIENT
  Age: 79 Year
  Sex: Female

DRUGS (3)
  1. BEOVU [Suspect]
     Active Substance: BROLUCIZUMAB-DBLL
     Indication: NEOVASCULAR AGE-RELATED MACULAR DEGENERATION
     Dosage: 6 MG/0.05 ML, QMO
     Route: 031
     Dates: start: 20191210
  2. BEOVU [Suspect]
     Active Substance: BROLUCIZUMAB-DBLL
     Dosage: 6 MG/0.05 ML, QMO
     Route: 031
     Dates: start: 20200108
  3. BEOVU [Suspect]
     Active Substance: BROLUCIZUMAB-DBLL
     Dosage: 6 MG/0.05 ML, QMO
     Route: 031
     Dates: start: 20200206

REACTIONS (4)
  - Iridocyclitis [Unknown]
  - Iritis [Unknown]
  - Vitritis [Unknown]
  - Uveitis [Recovering/Resolving]

NARRATIVE: CASE EVENT DATE: 202002
